FAERS Safety Report 6657495-2 (Version None)
Quarter: 2010Q1

REPORT INFORMATION
  Report Type: 
  Country: None (occurrence: None)
  Receive Date: 20100330
  Receipt Date: 20100324
  Transmission Date: 20100710
  Serious: Yes (Death, Hospitalization, Disabling, Other)
  Sender: FDA-Public Use
  Company Number: PHHY2010JP18341

PATIENT
  Sex: Male
  Weight: 49 kg

DRUGS (9)
  1. ICL670A ICL+DISTAB [Suspect]
     Indication: IRON OVERLOAD
     Dosage: 500 MG DAILY
     Route: 048
     Dates: start: 20081111, end: 20081119
  2. ICL670A ICL+DISTAB [Suspect]
     Dosage: 1000 MG DAILY
     Route: 048
     Dates: start: 20081120, end: 20090131
  3. ICL670A ICL+DISTAB [Suspect]
     Dosage: 500 MG DAILY
     Route: 048
     Dates: start: 20090226, end: 20090708
  4. DESFERAL [Concomitant]
     Dosage: 500 MG, UNK
     Route: 030
     Dates: start: 20070129, end: 20071209
  5. GLYSENNID [Concomitant]
     Dosage: 12 MG, UNK
     Route: 048
     Dates: start: 20070328, end: 20090915
  6. DIGOSIN [Concomitant]
     Indication: MYELODYSPLASTIC SYNDROME
     Dosage: 0.125 MG, UNK
     Route: 048
     Dates: start: 20070628, end: 20090915
  7. JUUZENTAIHOTOU [Concomitant]
     Indication: MYELODYSPLASTIC SYNDROME
     Dosage: 7.5 G, UNK
     Route: 048
     Dates: start: 20060116, end: 20090915
  8. LUPRAC [Concomitant]
     Dosage: 4 MG, UNK
     Route: 048
     Dates: start: 20070417, end: 20090915
  9. RED BLOOD CELLS [Concomitant]
     Dosage: 2 UNITS EVERY WEEK
     Dates: start: 20081113, end: 20090910

REACTIONS (13)
  - ANAEMIA [None]
  - BLOOD UREA INCREASED [None]
  - BONE MARROW FAILURE [None]
  - CONDITION AGGRAVATED [None]
  - DECREASED APPETITE [None]
  - HEPATIC FUNCTION ABNORMAL [None]
  - LEUKOPENIA [None]
  - MALAISE [None]
  - MYELODYSPLASTIC SYNDROME [None]
  - NAUSEA [None]
  - PLATELET COUNT DECREASED [None]
  - SERUM FERRITIN INCREASED [None]
  - WHITE BLOOD CELL COUNT DECREASED [None]
